FAERS Safety Report 4664611-0 (Version None)
Quarter: 2005Q2

REPORT INFORMATION
  Report Type: 
  Country: None (occurrence: None)
  Receive Date: 20050518
  Receipt Date: 20050225
  Transmission Date: 20051028
  Serious: Yes (Hospitalization)
  Sender: FDA-Public Use
  Company Number: DE-GLAXOSMITHKLINE-D0045998A

PATIENT
  Age: 14 Year
  Sex: Male
  Weight: 60 kg

DRUGS (5)
  1. LAMICTAL [Suspect]
     Indication: EPILEPSY
     Dosage: 25MG SEE DOSAGE TEXT
     Route: 048
     Dates: start: 20050131, end: 20050225
  2. PARACODIN N [Concomitant]
     Indication: UPPER RESPIRATORY TRACT INFECTION
     Route: 048
     Dates: start: 20050220, end: 20050225
  3. PARACETAMOL [Concomitant]
     Indication: UPPER RESPIRATORY TRACT INFECTION
     Dosage: 500MG UNKNOWN
     Route: 048
     Dates: start: 20050220, end: 20050225
  4. SINUPRET [Concomitant]
     Indication: UPPER RESPIRATORY TRACT INFECTION
     Route: 048
     Dates: start: 20050220, end: 20050225
  5. ACC AKUT [Concomitant]
     Indication: UPPER RESPIRATORY TRACT INFECTION
     Dosage: 200MG UNKNOWN
     Route: 048
     Dates: start: 20050220, end: 20050225

REACTIONS (11)
  - CONJUNCTIVITIS [None]
  - DRUG HYPERSENSITIVITY [None]
  - ENANTHEMA [None]
  - EXANTHEM [None]
  - GINGIVITIS [None]
  - MUCOSAL EXFOLIATION [None]
  - MUCOUS MEMBRANE DISORDER [None]
  - PRURITUS [None]
  - PYREXIA [None]
  - RASH MACULO-PAPULAR [None]
  - STOMATITIS [None]
